FAERS Safety Report 7119561-7 (Version None)
Quarter: 2010Q4

REPORT INFORMATION
  Report Type: 
  Country: None (occurrence: None)
  Receive Date: 20101012
  Receipt Date: 20101029
  Transmission Date: 20110411
  Serious: Yes (Other)
  Sender: FDA-Public Use
  Company Number: DSA_44280_2010

PATIENT
  Age: 85 Year
  Sex: Male

DRUGS (4)
  1. DILTIAZEM HYDROCHLORIDE [Suspect]
     Indication: PRODUCT USED FOR UNKNOWN INDICATION
     Dosage: 120 MG QD ORAL
     Route: 048
     Dates: start: 20091102, end: 20091121
  2. PRITOR /01421801/ (PRITOR-TELMISARTAN) 80 MG (NOT SPECIFIED) [Suspect]
     Indication: PRODUCT USED FOR UNKNOWN INDICATION
     Dosage: 80 MG QD ORAL
     Route: 048
     Dates: start: 20090101, end: 20091121
  3. ARTILOG [Concomitant]
  4. XICIL [Concomitant]

REACTIONS (6)
  - BLOOD PRESSURE DECREASED [None]
  - CONFUSIONAL STATE [None]
  - FALL [None]
  - HEAD INJURY [None]
  - HEART RATE DECREASED [None]
  - SYNCOPE [None]
